FAERS Safety Report 6660697-2 (Version None)
Quarter: 2010Q1

REPORT INFORMATION
  Report Type: 
  Country: None (occurrence: None)
  Receive Date: 20100326
  Receipt Date: 20100315
  Transmission Date: 20100710
  Serious: Yes (Other)
  Sender: FDA-Public Use
  Company Number: B0642196A

PATIENT
  Age: 89 Year
  Sex: Female

DRUGS (8)
  1. PAROXETINE HCL [Suspect]
  2. SODIUM CHLORIDE [Suspect]
  3. SPIRONOLACTONE [Concomitant]
  4. MECOBALAMIN [Concomitant]
  5. LIMAPROST [Concomitant]
  6. AMLODIPINE [Concomitant]
  7. ETODOLAC [Concomitant]
  8. RALOXIFENE HYDROCHLORIDE [Concomitant]

REACTIONS (3)
  - ALANINE AMINOTRANSFERASE INCREASED [None]
  - HIP ARTHROPLASTY [None]
  - INAPPROPRIATE ANTIDIURETIC HORMONE SECRETION [None]
